FAERS Safety Report 22269727 (Version 2)
Quarter: 2023Q2

REPORT INFORMATION
  Report Type: Report from Study
  Country: IT (occurrence: IT)
  Receive Date: 20230501
  Receipt Date: 20230519
  Transmission Date: 20230721
  Serious: Yes (Other)
  Sender: FDA-Public Use
  Company Number: None

PATIENT
  Age: 61 Year
  Sex: Female

DRUGS (2)
  1. IBUPROFEN [Suspect]
     Active Substance: IBUPROFEN
     Indication: Product used for unknown indication
     Dosage: 1 DOSAGE FORM, ,DOSAGE: 1UNIT OF MEASUREMENT: UN
     Route: 048
     Dates: start: 20220919, end: 20220919
  2. FILGRASTIM [Suspect]
     Active Substance: FILGRASTIM
     Indication: Hodgkin^s disease
     Dosage: 1 DOSAGE FORM, DOSAGE: 1UNIT OF MEASURE: DOSAGE
     Route: 058
     Dates: start: 20220917, end: 20220919

REACTIONS (3)
  - Angioedema [Recovered/Resolved]
  - Pruritus [Unknown]
  - Dysphagia [Recovered/Resolved]
